FAERS Safety Report 23147815 (Version 2)
Quarter: 2023Q4

REPORT INFORMATION
  Report Type: Spontaneous
  Country: US (occurrence: US)
  Receive Date: 20231106
  Receipt Date: 20231214
  Transmission Date: 20240109
  Serious: No
  Sender: FDA-Public Use
  Company Number: US-LUPIN PHARMACEUTICALS INC.-2023-09657

PATIENT

DRUGS (1)
  1. TIOTROPIUM BROMIDE [Suspect]
     Active Substance: TIOTROPIUM BROMIDE
     Indication: Chronic obstructive pulmonary disease
     Dosage: UNK, ONE CAPSULE ONCE A DAY

REACTIONS (6)
  - Device delivery system issue [Unknown]
  - Device mechanical issue [Unknown]
  - Device difficult to use [Unknown]
  - Wrong device used [Unknown]
  - Wrong technique in product usage process [Unknown]
  - No adverse event [Unknown]
